FAERS Safety Report 16296253 (Version 1)
Quarter: 2019Q2

REPORT INFORMATION
  Report Type: Report from Study
  Country: GB (occurrence: GB)
  Receive Date: 20190510
  Receipt Date: 20190510
  Transmission Date: 20190711
  Serious: Yes (Hospitalization, Other)
  Sender: FDA-Public Use
  Company Number: GB-JNJFOC-20190500724

PATIENT
  Sex: Female

DRUGS (1)
  1. STELARA [Suspect]
     Active Substance: USTEKINUMAB
     Indication: CROHN^S DISEASE
     Route: 058
     Dates: start: 20190115

REACTIONS (6)
  - Thrombosis [Unknown]
  - Blister [Recovered/Resolved]
  - Delirium [Unknown]
  - Lower respiratory tract infection [Unknown]
  - Eczema [Unknown]
  - Cystitis [Recovered/Resolved]
